FAERS Safety Report 14242062 (Version 1)
Quarter: 2017Q4

REPORT INFORMATION
  Report Type: Spontaneous
  Country: PL (occurrence: PL)
  Receive Date: 20171201
  Receipt Date: 20171201
  Transmission Date: 20180321
  Serious: Yes (Other)
  Sender: FDA-Public Use
  Company Number: PL-TEVA-2017-PL-827477

PATIENT
  Age: 34 Year
  Sex: Male

DRUGS (2)
  1. IBUPROFEN TEVA MAX [Suspect]
     Active Substance: IBUPROFEN
     Dosage: 400 MILLIGRAM DAILY;
     Route: 048
     Dates: start: 20170902, end: 20170902
  2. IBUPROFEN TEVA MAX [Suspect]
     Active Substance: IBUPROFEN
     Indication: PAIN
     Dosage: 400 MILLIGRAM DAILY;
     Route: 048
     Dates: start: 20170728, end: 20170728

REACTIONS (5)
  - Pruritus generalised [Unknown]
  - Hypersensitivity [Recovered/Resolved]
  - Anaphylactic shock [Recovered/Resolved]
  - Tachycardia [Recovered/Resolved]
  - Urticaria [Not Recovered/Not Resolved]

NARRATIVE: CASE EVENT DATE: 201708
